FAERS Safety Report 20246465 (Version 1)
Quarter: 2021Q4

REPORT INFORMATION
  Report Type: Spontaneous
  Country: NL (occurrence: NL)
  Receive Date: 20211229
  Receipt Date: 20211229
  Transmission Date: 20220304
  Serious: Yes (Death, Hospitalization, Other)
  Sender: FDA-Public Use
  Company Number: NL-NOVARTISPH-NVSC2020NL287781

PATIENT
  Age: 75 Year
  Sex: Female
  Weight: 167 kg

DRUGS (7)
  1. PREDNISONE [Suspect]
     Active Substance: PREDNISONE
     Indication: Chronic obstructive pulmonary disease
     Dosage: 1 DF, QD
     Route: 048
     Dates: start: 2020
  2. PREDNISONE [Suspect]
     Active Substance: PREDNISONE
     Indication: Respiratory failure
  3. ALIROCUMAB [Suspect]
     Active Substance: ALIROCUMAB
     Indication: Primary hypercholesterolaemia
     Dosage: 150 MG, QOW
     Route: 058
     Dates: start: 20191218
  4. HALOPERIDOL [Concomitant]
     Active Substance: HALOPERIDOL
     Indication: Product used for unknown indication
     Dosage: 15 ST; M1T
     Route: 065
  5. ACETAMINOPHEN [Concomitant]
     Active Substance: ACETAMINOPHEN
     Indication: Product used for unknown indication
     Dosage: 4 DF, PRN
     Route: 065
  6. EZETIMIBE [Concomitant]
     Active Substance: EZETIMIBE
     Indication: Product used for unknown indication
     Dosage: 1 DF, QOD
     Route: 065
  7. PANTOPRAZOLE [Concomitant]
     Active Substance: PANTOPRAZOLE
     Indication: Product used for unknown indication
     Dosage: 90ST; M1T
     Route: 065

REACTIONS (11)
  - Respiratory failure [Fatal]
  - Dyspnoea [Fatal]
  - Chronic obstructive pulmonary disease [Fatal]
  - Delirium [Unknown]
  - Confusional state [Unknown]
  - Pulmonary hypertension [Unknown]
  - Hallucination [Unknown]
  - Cardiac failure [Unknown]
  - Myocardial infarction [Unknown]
  - Tachycardia [Unknown]
  - Atrial flutter [Unknown]

NARRATIVE: CASE EVENT DATE: 20200101
